FAERS Safety Report 7774847-8 (Version None)
Quarter: 2011Q3

REPORT INFORMATION
  Report Type: 
  Country: None (occurrence: None)
  Receive Date: 20110920
  Receipt Date: 20110914
  Transmission Date: 20111222
  Serious: Yes (Other)
  Sender: FDA-Public Use
  Company Number: 2011SP030413

PATIENT
  Age: 44 Year
  Sex: Female

DRUGS (6)
  1. NUVIGIL [Concomitant]
  2. TRAZODONE HYDROCHLORIDE [Concomitant]
  3. SAPHRIS [Suspect]
     Indication: BIPOLAR DISORDER
     Dosage: 5 MG;HS;SL
     Route: 060
     Dates: start: 20110520, end: 20110520
  4. WELLBUTRIN [Concomitant]
  5. LITHIUM [Concomitant]
  6. LOSARTAN POTASSIUM AND HYDROCHLOROTHIAZIDE [Concomitant]

REACTIONS (1)
  - PARALYSIS [None]
